FAERS Safety Report 9170638 (Version 2)
Quarter: 2013Q1

REPORT INFORMATION
  Report Type: Spontaneous
  Country: GB (occurrence: None)
  Receive Date: 20130312
  Receipt Date: 20130328
  Transmission Date: 20140127
  Serious: Yes (Other)
  Sender: FDA-Public Use
  Company Number: 2013CYTGB00007

PATIENT
  Age: 46 Year
  Sex: Female

DRUGS (22)
  1. CYTARABINE [Suspect]
     Indication: ACUTE MYELOID LEUKAEMIA
     Dates: start: 20110819, end: 20110828
  2. AMBISOME [Suspect]
     Indication: PRODUCT USED FOR UNKNOWN INDICATION
     Route: 042
     Dates: start: 20110831, end: 20110831
  3. DAUNORUBICIN [Suspect]
     Indication: ACUTE MYELOID LEUKAEMIA
     Dates: start: 20110819, end: 20110828
  4. ETOPOSIDE [Suspect]
     Indication: ACUTE MYELOID LEUKAEMIA
  5. GEMTUZUMAB OZOGAMICIN [Suspect]
     Indication: ACUTE MYELOID LEUKAEMIA
     Dates: start: 20110819, end: 20110828
  6. MEROPENEM [Suspect]
     Indication: PRODUCT USED FOR UNKNOWN INDICATION
     Dates: start: 20110905, end: 20110911
  7. NORETHISTERONE (NORETHISTERONE) [Suspect]
     Indication: PRODUCT USED FOR UNKNOWN INDICATION
     Dates: start: 20110818
  8. TAZOCIN [Suspect]
     Indication: PRODUCT USED FOR UNKNOWN INDICATION
  9. VANCOMYCIN [Suspect]
     Route: 042
     Dates: start: 20110904, end: 20110909
  10. PHENOXYMETHYLPENICILLIN [Suspect]
     Indication: PRODUCT USED FOR UNKNOWN INDICATION
  11. ACICLOVIR [Concomitant]
  12. ALLOPURINOL [Concomitant]
  13. ANTI-D IMMUNOGLOBULIN [Concomitant]
  14. CODEINE [Concomitant]
  15. CYCLIZINE [Concomitant]
  16. DOCUSATE SODIUM (DOCUSATE SODIUM) [Concomitant]
  17. OMEPRAZOLE [Concomitant]
  18. ONDANSETRON [Concomitant]
  19. ORAMORPH [Concomitant]
  20. PARACETAMOL [Concomitant]
  21. RANITIDINE [Concomitant]
  22. TRANEXAMIC ACID [Concomitant]

REACTIONS (2)
  - Alanine aminotransferase increased [None]
  - Platelet count increased [None]
